FAERS Safety Report 4693448-1 (Version None)
Quarter: 2005Q2

REPORT INFORMATION
  Report Type: 
  Country: None (occurrence: None)
  Receive Date: 20050608
  Receipt Date: 20050126
  Transmission Date: 20051028
  Serious: Yes (Other)
  Sender: FDA-Public Use
  Company Number: 393808

PATIENT
  Sex: 0

DRUGS (3)
  1. ACCUTANE [Suspect]
     Indication: ACNE
     Dosage: 40 MG
     Dates: start: 20030915, end: 20040415
  2. ORAL CONTRACEPTIVE PILL (ORAL CONTRACEPTIVE NOS) [Concomitant]
  3. ESTROGEN PATCH (ESTROGENS NOS) [Concomitant]

REACTIONS (3)
  - DRUG EXPOSURE DURING PREGNANCY [None]
  - NO ADVERSE EFFECT [None]
  - PREGNANCY [None]
